FAERS Safety Report 6962725-3 (Version None)
Quarter: 2010Q3

REPORT INFORMATION
  Report Type: 
  Country: None (occurrence: None)
  Receive Date: 20100902
  Receipt Date: 20100828
  Transmission Date: 20110219
  Serious: Yes (Hospitalization)
  Sender: FDA-Public Use
  Company Number: US-BRISTOL-MYERS SQUIBB COMPANY-15209687

PATIENT
  Age: 45 Year
  Sex: Female
  Weight: 113 kg

DRUGS (3)
  1. IXEMPRA KIT [Suspect]
     Indication: ENDOMETRIAL CANCER
     Dosage: LAST ADMINS ON 23JUN10
     Route: 042
     Dates: start: 20100422
  2. CARBOPLATIN [Suspect]
     Indication: ENDOMETRIAL CANCER
     Dosage: LAST ADMINS ON 23JUN10
     Route: 042
     Dates: start: 20100422
  3. BEVACIZUMAB [Suspect]
     Indication: ENDOMETRIAL CANCER
     Dosage: LAST ADMINS ON 23JUN10
     Route: 042
     Dates: start: 20100422

REACTIONS (6)
  - HAEMOGLOBIN DECREASED [None]
  - HYPOALBUMINAEMIA [None]
  - MUSCLE ABSCESS [None]
  - SEPSIS [None]
  - ULCER [None]
  - URINARY TRACT INFECTION [None]
